FAERS Safety Report 18611286 (Version 1)
Quarter: 2020Q4

REPORT INFORMATION
  Report Type: Spontaneous
  Country: DE (occurrence: DE)
  Receive Date: 20201214
  Receipt Date: 20201214
  Transmission Date: 20210114
  Serious: Yes (Other)
  Sender: FDA-Public Use
  Company Number: DE-INCYTE CORPORATION-2020IN012396

PATIENT

DRUGS (1)
  1. JAKAVI [Suspect]
     Active Substance: RUXOLITINIB
     Indication: POLYCYTHAEMIA VERA
     Dosage: 2 DF, PER DAY (2 INTO 5 MG)
     Route: 065
     Dates: start: 20200924

REACTIONS (6)
  - Bone pain [Unknown]
  - Eye pain [Unknown]
  - Concomitant disease aggravated [Unknown]
  - Hemianopia [Unknown]
  - Visual field defect [Unknown]
  - Headache [Unknown]

NARRATIVE: CASE EVENT DATE: 20200924
